FAERS Safety Report 21198821 (Version 1)
Quarter: 2022Q3

REPORT INFORMATION
  Report Type: Spontaneous
  Country: US (occurrence: US)
  Receive Date: 20220811
  Receipt Date: 20220811
  Transmission Date: 20221026
  Serious: No
  Sender: FDA-Public Use
  Company Number: US-Melinta Therapeutics, LLC-US-MLNT-22-00017

PATIENT
  Sex: Female

DRUGS (8)
  1. BAXDELA [Suspect]
     Active Substance: DELAFLOXACIN MEGLUMINE
     Indication: Staphylococcal infection
     Route: 048
     Dates: start: 20211116
  2. LATANOPROST [Concomitant]
     Active Substance: LATANOPROST
     Indication: Product used for unknown indication
     Dosage: NOT PROVIDED.
  3. LEVOTHYROXINE [Concomitant]
     Active Substance: LEVOTHYROXINE
     Indication: Product used for unknown indication
     Dosage: NOT PROVIDED.
  4. AMLODIPINE [Concomitant]
     Active Substance: AMLODIPINE BESYLATE
     Indication: Product used for unknown indication
     Dosage: NOT PROVIDED.
  5. METOPROLOL [Concomitant]
     Active Substance: METOPROLOL
     Indication: Product used for unknown indication
     Dosage: NOT PROVIDED.
  6. PAROXETINE [Concomitant]
     Active Substance: PAROXETINE
     Indication: Product used for unknown indication
     Dosage: NOT PROVIDED.
  7. ATORVASTATIN [Concomitant]
     Active Substance: ATORVASTATIN
     Indication: Product used for unknown indication
     Dosage: NOT PROVIDED.
  8. LOSARTAN [Concomitant]
     Active Substance: LOSARTAN
     Indication: Product used for unknown indication
     Dosage: NOT PROVIDED.

REACTIONS (1)
  - Alopecia [Unknown]
